FAERS Safety Report 17703690 (Version 3)
Quarter: 2020Q4

REPORT INFORMATION
  Report Type: Report from Study
  Country: US (occurrence: US)
  Receive Date: 20200424
  Receipt Date: 20201228
  Transmission Date: 20210113
  Serious: Yes (Hospitalization)
  Sender: FDA-Public Use
  Company Number: NVSC2020US109286

PATIENT
  Age: 14 Year
  Sex: Female

DRUGS (3)
  1. MERCAPTOPURINE. [Suspect]
     Active Substance: MERCAPTOPURINE
     Indication: ACUTE LYMPHOCYTIC LEUKAEMIA
     Dosage: 100MG MONDAY-THURSDAY; 125MG FRIDAY-SUNDAY
     Route: 048
     Dates: start: 20200106
  2. METHOTREXATE. [Suspect]
     Active Substance: METHOTREXATE
     Indication: ACUTE LYMPHOCYTIC LEUKAEMIA
     Dosage: 30 MG, QW
     Route: 048
     Dates: start: 20200113
  3. INC424A [Suspect]
     Active Substance: RUXOLITINIB
     Indication: ACUTE LYMPHOCYTIC LEUKAEMIA
     Dosage: 80 MG, BID
     Route: 048
     Dates: start: 20200330

REACTIONS (1)
  - Febrile neutropenia [Recovered/Resolved]

NARRATIVE: CASE EVENT DATE: 20200411
